FAERS Safety Report 7263350-X (Version None)
Quarter: 2011Q1

REPORT INFORMATION
  Report Type: 
  Country: None (occurrence: None)
  Receive Date: 20110130
  Receipt Date: 20101105
  Transmission Date: 20110831
  Serious: No
  Sender: FDA-Public Use
  Company Number: US-ABBOTT-10P-163-0683726-00

PATIENT
  Age: 37 Year
  Sex: Female

DRUGS (9)
  1. METHADONE [Concomitant]
     Indication: CROHN'S DISEASE
  2. POTASSIUM [Concomitant]
     Indication: MINERAL SUPPLEMENTATION
  3. UNKNOWN MEDICATION [Concomitant]
     Indication: DEPRESSION
  4. AMBIEN [Concomitant]
     Indication: INSOMNIA
     Dosage: AT BEDTIME
  5. PEPCID [Concomitant]
     Indication: PROPHYLAXIS AGAINST GASTROINTESTINAL ULCER
  6. PREDNISONE [Concomitant]
     Indication: ADRENAL DISORDER
  7. DIPROLINE [Concomitant]
     Indication: PSORIASIS
  8. XANAX [Concomitant]
     Indication: ANXIETY
     Dosage: 3 TIMES A DAY AS NEEDED
  9. HUMIRA [Suspect]
     Indication: CROHN'S DISEASE
     Dates: start: 20100701

REACTIONS (1)
  - RASH [None]
